FAERS Safety Report 7163899-4 (Version None)
Quarter: 2010Q4

REPORT INFORMATION
  Report Type: 
  Country: None (occurrence: None)
  Receive Date: 20101215
  Receipt Date: 20100702
  Transmission Date: 20110411
  Serious: Yes (Hospitalization)
  Sender: FDA-Public Use
  Company Number: FR-PFIZER INC-2010082804

PATIENT
  Age: 81 Year
  Sex: Male

DRUGS (3)
  1. LYRICA [Suspect]
     Dosage: 50 MG, 2X/DAY
     Route: 048
     Dates: start: 20100611, end: 20100617
  2. CYMBALTA [Suspect]
     Dosage: 30MG PER DAY
     Route: 048
     Dates: start: 20100602, end: 20100611
  3. CYMBALTA [Suspect]
     Dosage: 60MG PER DAY
     Dates: start: 20100611, end: 20100617

REACTIONS (2)
  - HYPONATRAEMIA [None]
  - INAPPROPRIATE ANTIDIURETIC HORMONE SECRETION [None]
